FAERS Safety Report 12673511 (Version 1)
Quarter: 2016Q3

REPORT INFORMATION
  Report Type: Report from Study
  Country: US (occurrence: US)
  Receive Date: 20160822
  Receipt Date: 20160822
  Transmission Date: 20161109
  Serious: Yes (Death, Other)
  Sender: FDA-Public Use
  Company Number: US-BAYER-2016-115872

PATIENT
  Age: 79 Year
  Sex: Male

DRUGS (9)
  1. OXYCODONE [Concomitant]
     Active Substance: OXYCODONE
     Indication: PAIN
  2. SENOKOT [Concomitant]
     Active Substance: SENNOSIDES
     Indication: CONSTIPATION
  3. NAPROXEN. [Concomitant]
     Active Substance: NAPROXEN
     Indication: NIGHT SWEATS
  4. NAPROXEN. [Concomitant]
     Active Substance: NAPROXEN
     Indication: ABDOMINAL PAIN UPPER
     Dosage: 500 MG, BID
  5. PRILOSEC [Concomitant]
     Active Substance: OMEPRAZOLE MAGNESIUM
     Indication: GASTROOESOPHAGEAL REFLUX DISEASE
  6. NEXAVAR [Suspect]
     Active Substance: SORAFENIB
     Indication: HEPATOCELLULAR CARCINOMA
     Dosage: 400 MG, BID
     Route: 048
     Dates: start: 201603, end: 2016
  7. NEXAVAR [Suspect]
     Active Substance: SORAFENIB
     Indication: HEPATOCELLULAR CARCINOMA
     Dosage: 200 MG, BID
     Route: 048
     Dates: start: 2016, end: 2016
  8. SPIRONOLACTONE. [Concomitant]
     Active Substance: SPIRONOLACTONE
     Indication: OEDEMA
     Dosage: UNK UNK, BID
  9. LACTULOSE. [Concomitant]
     Active Substance: LACTULOSE
     Indication: CONSTIPATION
     Dosage: 15 MG, BID

REACTIONS (28)
  - Dry mouth [None]
  - Neoplasm progression [None]
  - Respiratory failure [None]
  - Abdominal pain upper [Recovered/Resolved]
  - Oxygen saturation decreased [None]
  - Abdominal pain [None]
  - Nausea [None]
  - Vomiting [None]
  - Stomatitis [Recovered/Resolved]
  - Dyspnoea [None]
  - Blood pressure decreased [None]
  - Death [Fatal]
  - Hepatic encephalopathy [None]
  - Pleural effusion [None]
  - General physical health deterioration [None]
  - Pulmonary physical examination abnormal [None]
  - Penile ulceration [Recovered/Resolved]
  - Infrequent bowel movements [None]
  - Chest X-ray abnormal [None]
  - Insomnia [None]
  - Abdominal tenderness [None]
  - Back pain [None]
  - Hepatic cancer [None]
  - Heart rate increased [None]
  - Urine output decreased [None]
  - Weight decreased [None]
  - Abdominal distension [Recovering/Resolving]
  - Breath odour [None]

NARRATIVE: CASE EVENT DATE: 201603
